FAERS Safety Report 4484647-2 (Version None)
Quarter: 2004Q3

REPORT INFORMATION
  Report Type: 
  Country: None (occurrence: None)
  Receive Date: 20040921
  Receipt Date: 20031111
  Transmission Date: 20050211
  Serious: Yes (Hospitalization)
  Sender: FDA-Public Use
  Company Number: 163-20785-03110288

PATIENT
  Age: 55 Year
  Sex: Male
  Weight: 90 kg

DRUGS (8)
  1. THALOMID [Suspect]
     Indication: MULTIPLE MYELOMA
     Dosage: 50 MG, QHS, ORAL;  150-50 MG, QHS, ORAL
     Route: 048
     Dates: start: 20030128, end: 20030618
  2. THALOMID [Suspect]
     Indication: MULTIPLE MYELOMA
     Dosage: 50 MG, QHS, ORAL;  150-50 MG, QHS, ORAL
     Route: 048
     Dates: start: 20030725, end: 20040527
  3. DOXIL [Suspect]
     Indication: MULTIPLE MYELOMA
     Dosage: 80 MG, INTRAVENOUS
     Route: 042
     Dates: start: 20030128, end: 20030618
  4. VINCRISTINE [Suspect]
     Indication: MULTIPLE MYELOMA
     Dosage: 2 MG, INTRAVENOUS
     Route: 042
     Dates: start: 20030128, end: 20030618
  5. DECADRON [Suspect]
     Indication: MULTIPLE MYELOMA
     Dosage: 40 MG, X 4 DAYS Q 28 D, ORAL
     Route: 048
     Dates: start: 20030128, end: 20030618
  6. PREDNISONE (PREDNISONE) (CAPSULES) [Suspect]
     Indication: MULTIPLE MYELOMA
     Dosage: 50 MG, QOD, ORAL
     Route: 048
     Dates: start: 20030725, end: 20040527
  7. ALLOPURINOL [Concomitant]
  8. ALTACE [Concomitant]

REACTIONS (8)
  - CONFUSIONAL STATE [None]
  - FATIGUE [None]
  - HYPERGLYCAEMIA [None]
  - MALAISE [None]
  - NAUSEA [None]
  - POLLAKIURIA [None]
  - RENAL FAILURE [None]
  - THIRST [None]
